FAERS Safety Report 25162458 (Version 1)
Quarter: 2025Q2

REPORT INFORMATION
  Report Type: Spontaneous
  Country: AT (occurrence: AT)
  Receive Date: 20250404
  Receipt Date: 20250404
  Transmission Date: 20250716
  Serious: Yes (Other)
  Sender: UCB
  Company Number: AT-UCBSA-2025019335

PATIENT
  Sex: Male

DRUGS (1)
  1. FINTEPLA [Suspect]
     Active Substance: FENFLURAMINE
     Indication: Lennox-Gastaut syndrome
     Dates: start: 202411, end: 2024

REACTIONS (3)
  - Brain fog [Unknown]
  - Unresponsive to stimuli [Unknown]
  - Listless [Unknown]
